FAERS Safety Report 8047392-2 (Version None)
Quarter: 2012Q1

REPORT INFORMATION
  Report Type: 
  Country: None (occurrence: None)
  Receive Date: 20120116
  Receipt Date: 20120112
  Transmission Date: 20120608
  Serious: No
  Sender: FDA-Public Use
  Company Number: US-B.I. PHARMACEUTICALS,INC./RIDGEFIELD-2012-BP-00754BP

PATIENT
  Age: 68 Year
  Sex: Male

DRUGS (3)
  1. COREG [Concomitant]
  2. DIGOXIN [Concomitant]
  3. PRADAXA [Suspect]
     Dosage: 300 MG
     Route: 048

REACTIONS (1)
  - HYPERKALAEMIA [None]
